FAERS Safety Report 9213020 (Version 1)
Quarter: 2013Q1

REPORT INFORMATION
  Report Type: Spontaneous
  Country: US (occurrence: None)
  Receive Date: 20120820
  Receipt Date: 20120820
  Transmission Date: 20140127
  Serious: No
  Sender: FDA-Public Use
  Company Number: 1000036694

PATIENT
  Sex: Female

DRUGS (7)
  1. VIIBRYD [Suspect]
     Indication: DEPRESSION
     Route: 048
     Dates: start: 201203, end: 2012
  2. VIIBRYD [Suspect]
     Indication: DEPRESSION
     Route: 048
     Dates: start: 2012, end: 201204
  3. REMERON (MIRTAZAPINE) [Concomitant]
  4. ZOCOR (SIMVASTATIN)(SIMVASTATIN) [Concomitant]
  5. LEVOXYL (LEVOTHYROXINE SODIUM) [Concomitant]
  6. METFORMIN (METFORMIN) (METFORMIN) [Concomitant]
  7. AMARYL (GLIMEPIRIDE) (GLIMEPIRIDE) [Concomitant]

REACTIONS (7)
  - Hot flush [None]
  - Cold sweat [None]
  - Hyperhidrosis [None]
  - Nightmare [None]
  - Hallucination [None]
  - Panic attack [None]
  - Nausea [None]
